FAERS Safety Report 8983163 (Version 1)
Quarter: 2012Q4

REPORT INFORMATION
  Report Type: 
  Country: JP (occurrence: JP)
  Receive Date: 20121224
  Receipt Date: 20121224
  Transmission Date: 20130627
  Serious: Yes (Other)
  Sender: FDA-Public Use
  Company Number: JP-ASTELLAS-2012JP011934

PATIENT
  Age: 82 Year
  Sex: Male

DRUGS (3)
  1. BETANIS [Suspect]
     Dosage: UNK
     Route: 048
     Dates: start: 201212
  2. HARNAL [Suspect]
     Dosage: UNK
     Route: 048
     Dates: start: 201212
  3. ANTIHYPERTENSIVES [Concomitant]
     Route: 048

REACTIONS (1)
  - Aphasia [Unknown]
